FAERS Safety Report 8337217-X (Version None)
Quarter: 2012Q2

REPORT INFORMATION
  Report Type: 
  Country: None (occurrence: None)
  Receive Date: 20120502
  Receipt Date: 20100413
  Transmission Date: 20120825
  Serious: Yes (Other)
  Sender: FDA-Public Use
  Company Number: DSA_56317_2012

PATIENT
  Sex: Male

DRUGS (19)
  1. PROTOPIC [Suspect]
     Indication: PRODUCT USED FOR UNKNOWN INDICATION
     Dosage: (DF)
  2. BUPROPION HCL [Concomitant]
  3. CHLORHEXIDINE GLUCONATE [Concomitant]
  4. SERTRALINE HYDROCHLORIDE [Concomitant]
  5. METHYLPREDNISOLONE [Concomitant]
  6. CEFADROXIL [Concomitant]
  7. ELIDEL [Suspect]
     Indication: ECZEMA
     Dosage: (DF TOPICAL)
     Route: 061
     Dates: start: 20030401
  8. PROCHLORPERAZINE [Concomitant]
  9. HYDROCODONE W/APAP /01554201/ [Concomitant]
  10. DOXYCYCLINE [Concomitant]
  11. ALPRAZOLAM [Concomitant]
  12. CLARINEX /0120601/ [Concomitant]
  13. CLINDAMYCNI [Concomitant]
  14. IBUPROFEN [Concomitant]
  15. BENZONATATE [Concomitant]
  16. PENICILLIN VK [Concomitant]
  17. IBUPROFEN (ADVIL) [Concomitant]
  18. LORAZEPAM [Concomitant]
  19. ZOLOFT [Concomitant]

REACTIONS (14)
  - LYMPHOCYTIC INFILTRATION [None]
  - BALANCE DISORDER [None]
  - HYPOAESTHESIA [None]
  - JAW DISORDER [None]
  - RHINITIS ALLERGIC [None]
  - BONE NEOPLASM [None]
  - NON-HODGKIN'S LYMPHOMA [None]
  - INJURY [None]
  - DIZZINESS [None]
  - SEROSITIS [None]
  - EAR PAIN [None]
  - DYSPLASIA [None]
  - OTORRHOEA [None]
  - SWELLING [None]
